FAERS Safety Report 5991021-6 (Version None)
Quarter: 2008Q4

REPORT INFORMATION
  Report Type: 
  Country: None (occurrence: None)
  Receive Date: 20081211
  Receipt Date: 20081204
  Transmission Date: 20090506
  Serious: Yes (Disabling, Other)
  Sender: FDA-Public Use
  Company Number: GB-MERCK-0812GBR00031

PATIENT
  Age: 54 Year
  Sex: Male

DRUGS (6)
  1. ZOCOR [Suspect]
     Route: 048
     Dates: start: 20081118, end: 20081119
  2. ZOCOR [Suspect]
     Route: 048
     Dates: start: 20081119
  3. SULFASALAZINE [Concomitant]
     Indication: RHEUMATOID ARTHRITIS
     Route: 048
  4. TRAMADOL HYDROCHLORIDE [Concomitant]
     Route: 048
  5. WARFARIN [Concomitant]
     Indication: DEEP VEIN THROMBOSIS
     Route: 048
  6. WARFARIN [Concomitant]
     Indication: PULMONARY EMBOLISM
     Route: 048

REACTIONS (1)
  - URINARY RETENTION [None]
